FAERS Safety Report 21702980 (Version 1)
Quarter: 2022Q4

REPORT INFORMATION
  Report Type: Spontaneous
  Country: DE (occurrence: DE)
  Receive Date: 20221209
  Receipt Date: 20221209
  Transmission Date: 20230113
  Serious: Yes (Other)
  Sender: FDA-Public Use
  Company Number: None

PATIENT
  Age: 65 Year
  Sex: Male
  Weight: 82 kg

DRUGS (2)
  1. BEMPEDOIC ACID [Suspect]
     Active Substance: BEMPEDOIC ACID
     Indication: Arteriosclerosis
     Dosage: 180 MG, QD
     Route: 048
     Dates: start: 20220927, end: 20221118
  2. BEMPEDOIC ACID [Suspect]
     Active Substance: BEMPEDOIC ACID
     Indication: Low density lipoprotein increased

REACTIONS (3)
  - Arrhythmia [Recovered/Resolved]
  - Ventricular extrasystoles [Recovered/Resolved]
  - Supraventricular extrasystoles [Recovered/Resolved]

NARRATIVE: CASE EVENT DATE: 20220927
